FAERS Safety Report 8950664 (Version 1)
Quarter: 2012Q4

REPORT INFORMATION
  Report Type: Spontaneous
  Country: SZ (occurrence: None)
  Receive Date: 20121128
  Receipt Date: 20121128
  Transmission Date: 20130627
  Serious: Yes (Other)
  Sender: FDA-Public Use
  Company Number: B0846993A

PATIENT
  Age: 59 Year
  Sex: Male

DRUGS (1)
  1. ELTROMBOPAG [Suspect]
     Indication: AUTOIMMUNE THROMBOCYTOPENIA

REACTIONS (5)
  - Skin toxicity [None]
  - Rash [None]
  - Pruritus [None]
  - Gastrointestinal haemorrhage [None]
  - Platelet count decreased [None]
